FAERS Safety Report 6185431-4 (Version None)
Quarter: 2009Q2

REPORT INFORMATION
  Report Type: 
  Country: None (occurrence: None)
  Receive Date: 20090511
  Receipt Date: 20090430
  Transmission Date: 20091009
  Serious: Yes (Other)
  Sender: FDA-Public Use
  Company Number: US-ASTRAZENECA-2001AP01505

PATIENT
  Age: 13 Year
  Sex: Female
  Weight: 50 kg

DRUGS (17)
  1. DIPRIVAN [Suspect]
     Dosage: PATIENT RECEIVED 14400 MG PROPOFOL
     Route: 041
  2. TPN [Suspect]
     Route: 051
  3. AMOXICILLIN [Concomitant]
  4. ERYTHROMYCIN [Concomitant]
  5. CEFTRIAXONE [Concomitant]
  6. DIAZEPAM [Concomitant]
  7. PHENYTOIN [Concomitant]
  8. LORAZEPAM [Concomitant]
  9. PHENOBARBITAL [Concomitant]
  10. VALPROIC ACID [Concomitant]
     Route: 042
  11. MIDAZOLAM HCL [Concomitant]
  12. CEFOTAXIME [Concomitant]
  13. AMPICILLIN [Concomitant]
  14. ACYCLOVIR [Concomitant]
  15. TETRACYCLINE [Concomitant]
  16. PENTOBARBITAL CAP [Concomitant]
  17. GANGCYCLOVIR [Concomitant]

REACTIONS (3)
  - HEPATIC ENZYME INCREASED [None]
  - HEPATIC STEATOSIS [None]
  - HEPATOMEGALY [None]
